FAERS Safety Report 16632910 (Version 1)
Quarter: 2019Q3

REPORT INFORMATION
  Report Type: Spontaneous
  Country: US (occurrence: US)
  Receive Date: 20190725
  Receipt Date: 20190725
  Transmission Date: 20191004
  Serious: No
  Sender: FDA-Public Use
  Company Number: US-PFIZER INC-2019314358

PATIENT
  Age: 41 Year
  Sex: Female

DRUGS (2)
  1. EFFEXOR [Suspect]
     Active Substance: VENLAFAXINE HYDROCHLORIDE
     Dosage: 75 MG, DAILY
     Dates: start: 20060728, end: 20060815
  2. EFFEXOR [Suspect]
     Active Substance: VENLAFAXINE HYDROCHLORIDE
     Dosage: 75 MG, DAILY
     Dates: start: 20120625, end: 20120730

REACTIONS (2)
  - Drug ineffective [Unknown]
  - Nausea [Unknown]

NARRATIVE: CASE EVENT DATE: 2012
